FAERS Safety Report 17369799 (Version 1)
Quarter: 2020Q1

REPORT INFORMATION
  Report Type: Spontaneous
  Country: US (occurrence: US)
  Receive Date: 20200205
  Receipt Date: 20200205
  Transmission Date: 20200409
  Serious: No
  Sender: FDA-Public Use
  Company Number: US-CELGENEUS-USA-20200110899

PATIENT
  Age: 54 Year
  Sex: Female

DRUGS (3)
  1. CLARINEX [Concomitant]
     Active Substance: DESLORATADINE
     Indication: HISTAMINE ABNORMAL
     Route: 065
  2. OTEZLA [Suspect]
     Active Substance: APREMILAST
     Indication: PSORIASIS
     Dosage: 60 MILLIGRAM
     Route: 048
     Dates: start: 20191218
  3. OTEZLA [Suspect]
     Active Substance: APREMILAST
     Indication: PSORIATIC ARTHROPATHY

REACTIONS (1)
  - Cough [Unknown]

NARRATIVE: CASE EVENT DATE: 202001
